FAERS Safety Report 8780618 (Version 2)
Quarter: 2012Q4

REPORT INFORMATION
  Report Type: Report from Study
  Country: DE (occurrence: DE)
  Receive Date: 20120913
  Receipt Date: 20120928
  Transmission Date: 20130627
  Serious: Yes (Hospitalization)
  Sender: FDA-Public Use
  Company Number: DE-ROCHE-1122881

PATIENT
  Age: 65 Year
  Sex: Female
  Weight: 68 kg

DRUGS (3)
  1. AVASTIN [Suspect]
     Indication: OVARIAN CANCER
     Dosage: Last dose prior to SAE 20/Aug/2012
     Route: 042
     Dates: start: 20120820
  2. PACLITAXEL [Suspect]
     Indication: OVARIAN CANCER
     Dosage: last dose prior to sae: 30/Jul/2012
     Route: 042
     Dates: start: 20120618
  3. CARBOPLATIN [Suspect]
     Indication: OVARIAN CANCER
     Dosage: Last dose prior to SAE 20/Aug/2012
     Route: 042
     Dates: start: 20120618

REACTIONS (1)
  - Intervertebral disc protrusion [Recovered/Resolved]
